FAERS Safety Report 22304159 (Version 2)
Quarter: 2023Q2

REPORT INFORMATION
  Report Type: Spontaneous
  Country: US (occurrence: US)
  Receive Date: 20230510
  Receipt Date: 20230518
  Transmission Date: 20230721
  Serious: Yes (Other)
  Sender: FDA-Public Use
  Company Number: US-PFIZER INC-PV202300082697

PATIENT
  Sex: Female

DRUGS (1)
  1. RUXIENCE [Suspect]
     Active Substance: RITUXIMAB-PVVR
     Dosage: UNK

REACTIONS (11)
  - Blindness [Unknown]
  - Malaise [Unknown]
  - Rash [Recovered/Resolved]
  - Dizziness [Unknown]
  - Vomiting [Unknown]
  - Nausea [Unknown]
  - Visual impairment [Unknown]
  - Eye disorder [Unknown]
  - Headache [Unknown]
  - Metabolic disorder [Unknown]
  - Decreased appetite [Unknown]
